FAERS Safety Report 18213527 (Version 1)
Quarter: 2020Q3

REPORT INFORMATION
  Report Type: Spontaneous
  Country: US (occurrence: US)
  Receive Date: 20200831
  Receipt Date: 20200831
  Transmission Date: 20201103
  Serious: Yes (Hospitalization)
  Sender: FDA-Public Use
  Company Number: None

PATIENT
  Age: 69 Year
  Sex: Male

DRUGS (1)
  1. ALFUZOSIN (ALFUZOSIN HCL 10MG TAB, SA) [Suspect]
     Active Substance: ALFUZOSIN HYDROCHLORIDE
     Indication: BENIGN PROSTATIC HYPERPLASIA
     Route: 048
     Dates: start: 20171030, end: 20200706

REACTIONS (5)
  - Fall [None]
  - Syncope [None]
  - Dizziness [None]
  - Orthostatic hypotension [None]
  - Subarachnoid haemorrhage [None]

NARRATIVE: CASE EVENT DATE: 20200706
